FAERS Safety Report 21499480 (Version 1)
Quarter: 2022Q4

REPORT INFORMATION
  Report Type: Spontaneous
  Country: US (occurrence: US)
  Receive Date: 20221024
  Receipt Date: 20221024
  Transmission Date: 20230113
  Serious: Yes (Other)
  Sender: FDA-Public Use
  Company Number: US-ALLERGAN-2233723US

PATIENT
  Sex: Female

DRUGS (4)
  1. REFRESH RELIEVA PF [Suspect]
     Active Substance: CARBOXYMETHYLCELLULOSE SODIUM\GLYCERIN
     Indication: Dry eye
     Dosage: UNK, PRN
     Route: 047
     Dates: start: 202205, end: 202210
  2. METOPROLOL [Concomitant]
     Active Substance: METOPROLOL
     Indication: Cardiac disorder
     Dosage: UNK
  3. POTASSIUM [Concomitant]
     Active Substance: POTASSIUM
     Indication: Supplementation therapy
     Dosage: UNK
  4. MAGNESIUM [Concomitant]
     Active Substance: MAGNESIUM
     Indication: Supplementation therapy
     Dosage: UNK

REACTIONS (14)
  - Cataract [Unknown]
  - Eyelid margin crusting [Not Recovered/Not Resolved]
  - Skin exfoliation [Not Recovered/Not Resolved]
  - Inflammation [Recovered/Resolved]
  - Asthenopia [Not Recovered/Not Resolved]
  - Visual impairment [Not Recovered/Not Resolved]
  - Therapy interrupted [Unknown]
  - Vision blurred [Unknown]
  - Eye irritation [Unknown]
  - Halo vision [Not Recovered/Not Resolved]
  - Eye pain [Unknown]
  - Eye discharge [Unknown]
  - Dry eye [Unknown]
  - Drug ineffective [Unknown]

NARRATIVE: CASE EVENT DATE: 20220501
